FAERS Safety Report 13756462 (Version 2)
Quarter: 2017Q3

REPORT INFORMATION
  Report Type: Spontaneous
  Country: CN (occurrence: CN)
  Receive Date: 20170714
  Receipt Date: 20170807
  Transmission Date: 20171127
  Serious: Yes (Other)
  Sender: FDA-Public Use
  Company Number: CN-JNJFOC-20170706764

PATIENT

DRUGS (2)
  1. AZATHIOPRINE. [Suspect]
     Active Substance: AZATHIOPRINE
     Indication: CROHN^S DISEASE
     Dosage: 1.0 TO 1.5 MG
     Route: 065
     Dates: start: 201004, end: 201511
  2. INFLIXIMAB [Suspect]
     Active Substance: INFLIXIMAB
     Indication: CROHN^S DISEASE
     Route: 042
     Dates: start: 201004, end: 201511

REACTIONS (16)
  - Intestinal obstruction [Unknown]
  - Nephritic syndrome [Unknown]
  - White blood cell count decreased [Unknown]
  - Anal fistula [Unknown]
  - Infection [Unknown]
  - Arthralgia [Unknown]
  - Infusion related reaction [Unknown]
  - Septic shock [Unknown]
  - Rash [Unknown]
  - Mouth ulceration [Unknown]
  - Pyrexia [Unknown]
  - Abdominal pain [Unknown]
  - Azotaemia [Unknown]
  - Crohn^s disease [Unknown]
  - Diarrhoea [Unknown]
  - Drug ineffective [Unknown]
